FAERS Safety Report 14378002 (Version 2)
Quarter: 2018Q4

REPORT INFORMATION
  Report Type: Spontaneous
  Country: US (occurrence: US)
  Receive Date: 20180111
  Receipt Date: 20181009
  Transmission Date: 20190204
  Serious: No
  Sender: FDA-Public Use
  Company Number: US-MYLANLABS-2017M1079532

PATIENT

DRUGS (1)
  1. OLUX [Suspect]
     Active Substance: CLOBETASOL PROPIONATE
     Indication: DANDRUFF
     Dosage: UNK
     Route: 061

REACTIONS (12)
  - Scab [Not Recovered/Not Resolved]
  - Alopecia [Not Recovered/Not Resolved]
  - Acne [Not Recovered/Not Resolved]
  - Drug ineffective for unapproved indication [Unknown]
  - Skin exfoliation [Not Recovered/Not Resolved]
  - Pruritus [Not Recovered/Not Resolved]
  - Hair texture abnormal [Not Recovered/Not Resolved]
  - Condition aggravated [Not Recovered/Not Resolved]
  - Headache [Unknown]
  - Insomnia [Unknown]
  - Skin papilloma [Not Recovered/Not Resolved]
  - Heart rate decreased [Unknown]
